FAERS Safety Report 20876565 (Version 4)
Quarter: 2022Q4

REPORT INFORMATION
  Report Type: Spontaneous
  Country: DE (occurrence: DE)
  Receive Date: 20220526
  Receipt Date: 20221210
  Transmission Date: 20230113
  Serious: Yes (Hospitalization, Other)
  Sender: FDA-Public Use
  Company Number: DE-BRISTOL-MYERS SQUIBB COMPANY-2022-042925

PATIENT
  Age: 58 Year
  Sex: Female
  Weight: 98.5 kg

DRUGS (7)
  1. OPDIVO [Suspect]
     Active Substance: NIVOLUMAB
     Indication: Renal cell carcinoma
     Dosage: NIVOLUMAB 3 MG/KG EVERY 3 WEEKS??3 COMBINED DOSES
     Route: 042
     Dates: start: 201906, end: 20190814
  2. OPDIVO [Suspect]
     Active Substance: NIVOLUMAB
     Dosage: NIVOLUMAB MONOTHERAPY IN OCTOBER 2019
     Route: 065
     Dates: start: 201910
  3. YERVOY [Suspect]
     Active Substance: IPILIMUMAB
     Indication: Renal cell carcinoma
     Dosage: IPILIMUMAB 1 MG/KG
     Route: 042
     Dates: start: 201906, end: 20190814
  4. YERVOY [Suspect]
     Active Substance: IPILIMUMAB
  5. DIMETHINDENE [Concomitant]
     Active Substance: DIMETHINDENE
     Indication: Product used for unknown indication
     Route: 065
  6. RANITIDINE [Concomitant]
     Active Substance: RANITIDINE
     Indication: Product used for unknown indication
     Route: 065
  7. ACETAMINOPHEN [Concomitant]
     Active Substance: ACETAMINOPHEN
     Indication: Product used for unknown indication
     Route: 065

REACTIONS (6)
  - Gastroenteritis [Recovering/Resolving]
  - Sepsis [Recovering/Resolving]
  - Renal cell carcinoma recurrent [Unknown]
  - Metastases to liver [Unknown]
  - Oedema peripheral [Not Recovered/Not Resolved]
  - Prescribed underdose [Unknown]

NARRATIVE: CASE EVENT DATE: 20190801
